FAERS Safety Report 7883565-7 (Version None)
Quarter: 2011Q4

REPORT INFORMATION
  Report Type: 
  Country: None (occurrence: None)
  Receive Date: 20111102
  Receipt Date: 20101001
  Transmission Date: 20120403
  Serious: No
  Sender: FDA-Public Use
  Company Number: US-BAYER-201035603NA

PATIENT
  Age: 67 Year
  Sex: Female

DRUGS (2)
  1. AVELOX [Suspect]
  2. ADVAIR DISKUS 100/50 [Concomitant]

REACTIONS (1)
  - PAIN IN EXTREMITY [None]
